FAERS Safety Report 12400874 (Version 2)
Quarter: 2016Q2

REPORT INFORMATION
  Report Type: Spontaneous
  Country: US (occurrence: US)
  Receive Date: 20160525
  Receipt Date: 20160525
  Transmission Date: 20160815
  Serious: No
  Sender: FDA-Public Use
  Company Number: US-SA-2015SA100704

PATIENT
  Age: 70 Year
  Sex: Female

DRUGS (1)
  1. LANTUS [Suspect]
     Active Substance: INSULIN GLARGINE
     Indication: TYPE 2 DIABETES MELLITUS
     Dosage: DOSE:60 UNIT(S)
     Route: 065

REACTIONS (6)
  - Blood glucose decreased [Unknown]
  - Cataract [Unknown]
  - Weight increased [Unknown]
  - Blood glucose increased [Unknown]
  - Hypoacusis [Unknown]
  - Visual acuity reduced [Unknown]
